FAERS Safety Report 12153710 (Version 3)
Quarter: 2016Q3

REPORT INFORMATION
  Report Type: Report from Study
  Country: CA (occurrence: CA)
  Receive Date: 20160307
  Receipt Date: 20160905
  Transmission Date: 20161109
  Serious: Yes (Other)
  Sender: FDA-Public Use
  Company Number: CA-ROCHE-1128855

PATIENT
  Age: 30 Year
  Sex: Female
  Weight: 49 kg

DRUGS (9)
  1. ACTEMRA [Suspect]
     Active Substance: TOCILIZUMAB
     Route: 042
     Dates: start: 20140819
  2. ACTEMRA [Suspect]
     Active Substance: TOCILIZUMAB
     Route: 042
     Dates: start: 20130507
  3. ACTEMRA [Suspect]
     Active Substance: TOCILIZUMAB
     Route: 042
     Dates: start: 20140422
  4. ACTEMRA [Suspect]
     Active Substance: TOCILIZUMAB
     Route: 042
     Dates: start: 20130408
  5. ACTEMRA [Suspect]
     Active Substance: TOCILIZUMAB
     Route: 042
     Dates: start: 20120618
  6. NASONEX [Concomitant]
     Active Substance: MOMETASONE FUROATE
  7. SULFASALAZINE. [Concomitant]
     Active Substance: SULFASALAZINE
  8. ACTEMRA [Suspect]
     Active Substance: TOCILIZUMAB
     Indication: JUVENILE IDIOPATHIC ARTHRITIS
     Dosage: MOST RECENT DOSE ON 08/JAN/2013.
     Route: 042
     Dates: start: 20120518
  9. ACTEMRA [Suspect]
     Active Substance: TOCILIZUMAB
     Route: 042
     Dates: start: 20150406

REACTIONS (32)
  - Pain [Recovered/Resolved]
  - Nasopharyngitis [Recovering/Resolving]
  - Heart rate increased [Unknown]
  - Blood pressure diastolic increased [Unknown]
  - Weight decreased [Unknown]
  - Contusion [Recovered/Resolved]
  - Infusion related reaction [Unknown]
  - Nausea [Not Recovered/Not Resolved]
  - Stress [Not Recovered/Not Resolved]
  - Cough [Not Recovered/Not Resolved]
  - Feeling hot [Recovering/Resolving]
  - Menorrhagia [Unknown]
  - Menstruation irregular [Not Recovered/Not Resolved]
  - Blood pressure increased [Unknown]
  - Gingival pain [Recovered/Resolved]
  - Pruritus [Recovered/Resolved]
  - Insomnia [Not Recovered/Not Resolved]
  - Body temperature decreased [Unknown]
  - Pruritus [Not Recovered/Not Resolved]
  - Weight increased [Unknown]
  - Oral herpes [Recovered/Resolved]
  - Erythema [Not Recovered/Not Resolved]
  - Headache [Not Recovered/Not Resolved]
  - Fatigue [Recovered/Resolved]
  - Dermatitis [Not Recovered/Not Resolved]
  - Photophobia [Recovered/Resolved]
  - Gingivitis [Recovered/Resolved]
  - Skin papilloma [Recovering/Resolving]
  - Eczema [Unknown]
  - Heart rate increased [Unknown]
  - Influenza like illness [Not Recovered/Not Resolved]
  - Oxygen saturation decreased [Unknown]

NARRATIVE: CASE EVENT DATE: 201207
